FAERS Safety Report 23539315 (Version 1)
Quarter: 2024Q1

REPORT INFORMATION
  Report Type: Report from Study
  Country: US (occurrence: US)
  Receive Date: 20240219
  Receipt Date: 20240219
  Transmission Date: 20240409
  Serious: No
  Sender: FDA-Public Use
  Company Number: US-E2BLSMVVAL-CLI/USA/24/0002659

PATIENT
  Age: 38 Year
  Sex: Female

DRUGS (1)
  1. JAVYGTOR [Suspect]
     Active Substance: SAPROPTERIN DIHYDROCHLORIDE
     Indication: Phenylketonuria
     Dosage: 500 MG PACKET
     Route: 048
     Dates: start: 20230807, end: 20230807

REACTIONS (2)
  - Exposure during pregnancy [Unknown]
  - Treatment noncompliance [Unknown]
